FAERS Safety Report 7038097-5 (Version None)
Quarter: 2010Q4

REPORT INFORMATION
  Report Type: 
  Country: None (occurrence: None)
  Receive Date: 20101011
  Receipt Date: 20101001
  Transmission Date: 20110411
  Serious: Yes (Other)
  Sender: FDA-Public Use
  Company Number: CA-ABBOTT-10P-028-0675339-00

PATIENT
  Sex: Male
  Weight: 96 kg

DRUGS (3)
  1. MAVIK [Suspect]
     Indication: ESSENTIAL HYPERTENSION
     Dosage: 2MG/DAY
     Dates: start: 20100213
  2. METOPROLOL [Concomitant]
     Indication: PRODUCT USED FOR UNKNOWN INDICATION
     Dates: start: 20100213
  3. UNK DIFFERENT MEDICATIONS [Concomitant]
     Indication: PRODUCT USED FOR UNKNOWN INDICATION

REACTIONS (2)
  - CARDIAC ARREST [None]
  - MYOCARDIAL INFARCTION [None]
